FAERS Safety Report 6785495-0 (Version None)
Quarter: 2010Q2

REPORT INFORMATION
  Report Type: 
  Country: None (occurrence: None)
  Receive Date: 20100623
  Receipt Date: 20100618
  Transmission Date: 20101027
  Serious: Yes (Death)
  Sender: FDA-Public Use
  Company Number: ES-SHIRE-CQT2-2009-00040

PATIENT
  Sex: Male
  Weight: 86 kg

DRUGS (16)
  1. ANAGRELIDE HCL [Suspect]
     Indication: ESSENTIAL THROMBOCYTHAEMIA
     Dosage: 1 MG, 2X/DAY:BID
     Route: 048
     Dates: start: 20091028
  2. ANAGRELIDE HCL [Suspect]
     Dosage: .5 MG, 2X/DAY:BID
     Route: 048
     Dates: start: 20051010, end: 20051212
  3. ANAGRELIDE HCL [Suspect]
     Dosage: 1.5 MG (DIVIDED INTO TWO DOSES)
     Route: 048
     Dates: start: 20051213, end: 20060207
  4. ANAGRELIDE HCL [Suspect]
     Dosage: .5 MG, 2X/DAY:BID
     Route: 048
     Dates: start: 20060208, end: 20060410
  5. ANAGRELIDE HCL [Suspect]
     Dosage: 1.5 MG (DIVIDED INTO TWO DOSES)
     Route: 048
     Dates: start: 20060411, end: 20060728
  6. ANAGRELIDE HCL [Suspect]
     Dosage: 1 MG, 2X/DAY:BID
     Route: 048
     Dates: start: 20060729, end: 20070226
  7. ANAGRELIDE HCL [Suspect]
     Dosage: 1.5 MG (DIVIDED INTO TWO DOSES)
     Route: 048
     Dates: start: 20070227, end: 20070625
  8. ANAGRELIDE HCL [Suspect]
     Dosage: 1 MG, 2X/DAY:BID
     Route: 048
     Dates: start: 20070626, end: 20080714
  9. ANAGRELIDE HCL [Suspect]
     Dosage: 1.5 MG (DIVIDED INTO TWO DOSES)
     Route: 048
     Dates: start: 20080715, end: 20081027
  10. ACETYLSALICYLIC ACID [Suspect]
     Indication: ESSENTIAL THROMBOCYTHAEMIA
     Dosage: 100 MG, 1X/DAY:QD
     Route: 048
     Dates: start: 20060505
  11. ACENOCUMAROL [Suspect]
     Indication: ESSENTIAL THROMBOCYTHAEMIA
     Dosage: 3 MG, 1X/DAY:QD
     Route: 048
     Dates: start: 19960523
  12. HYDROXYUREA [Suspect]
     Indication: ESSENTIAL THROMBOCYTHAEMIA
     Dosage: 500 MG, 2X/DAY:BID
     Route: 048
     Dates: start: 19971205, end: 20051009
  13. CANDESARTAN [Concomitant]
     Indication: HYPERTENSION
     Dosage: 8 MG, 1X/DAY:QD
     Route: 048
     Dates: start: 20080101
  14. ATENOLOL [Concomitant]
     Indication: HYPERTENSION
     Dosage: 100 MG, 1X/DAY:QD
     Route: 048
     Dates: start: 20080101
  15. GLICLAZIDE [Concomitant]
     Indication: DIABETES MELLITUS
     Dosage: 30 MG, 1X/DAY:QD
     Route: 048
     Dates: start: 20080101
  16. TAMSULOSIN HCL [Concomitant]
     Indication: BENIGN PROSTATIC HYPERPLASIA
     Dosage: .4 MG, 1X/DAY:QD
     Route: 048
     Dates: start: 20080101

REACTIONS (1)
  - CARDIO-RESPIRATORY ARREST [None]
